FAERS Safety Report 23703630 (Version 1)
Quarter: 2024Q2

REPORT INFORMATION
  Report Type: Other
  Country: None (occurrence: None)
  Receive Date: 20240403
  Receipt Date: 20240403
  Transmission Date: 20240717
  Serious: Yes (Other)
  Sender: FDA-Public Use
  Company Number: Aprecia Pharmaceuticals-APRE20240819

PATIENT

DRUGS (2)
  1. LEVETIRACETAM [Suspect]
     Active Substance: LEVETIRACETAM
     Indication: Epilepsy
     Dosage: UNKNOWN
     Route: 065
  2. PERAMPANEL [Suspect]
     Active Substance: PERAMPANEL
     Indication: Epilepsy
     Dosage: STARTED AT 2 MG/DAY, INCREASED BY 2 MG/DAY BIWEEKLY OR MORE UNTIL MAINTENANCE DOSE REACHED.
     Route: 065

REACTIONS (1)
  - Intentional self-injury [Unknown]
